FAERS Safety Report 10053745 (Version 1)
Quarter: 2014Q2

REPORT INFORMATION
  Report Type: Spontaneous
  Country: US (occurrence: US)
  Receive Date: 20140402
  Receipt Date: 20140402
  Transmission Date: 20141212
  Serious: No
  Sender: FDA-Public Use
  Company Number: US-AMGEN-USASP2014014930

PATIENT
  Age: 7 Year
  Sex: Male

DRUGS (2)
  1. ENBREL [Suspect]
     Indication: JUVENILE IDIOPATHIC ARTHRITIS
     Dosage: 25 MG, QWK
     Route: 065
     Dates: start: 20131215
  2. METHOTREXATE [Concomitant]
     Dosage: 0.4 ML, QWK
     Dates: start: 201309

REACTIONS (1)
  - Cough [Not Recovered/Not Resolved]
